FAERS Safety Report 8370957-5 (Version None)
Quarter: 2012Q1

REPORT INFORMATION
  Report Type: 
  Country: None (occurrence: None)
  Receive Date: 20120323
  Receipt Date: 20110221
  Transmission Date: 20120608
  Serious: Yes (Hospitalization)
  Sender: FDA-Public Use
  Company Number: 163-21880-11013055

PATIENT
  Age: 60 Year
  Sex: Female

DRUGS (6)
  1. NORVASC [Concomitant]
  2. PROTONIX (PANTOPRAZOLE SODIUM) (UNKNOWN) [Concomitant]
  3. METHADONE HCL [Concomitant]
  4. ULTRACET (ULTRACET) (UNKNOWN) [Concomitant]
  5. REVLIMID [Suspect]
     Indication: MULTIPLE MYELOMA
     Dosage: 25 MG, DAILY X 21 DAYS, PO
     Route: 048
     Dates: start: 20081202
  6. CRESTOR (ROSUVASTATIN) (UNKNOWN) [Concomitant]

REACTIONS (2)
  - VIRAL DIARRHOEA [None]
  - COUGH [None]
